FAERS Safety Report 5245250-X (Version None)
Quarter: 2007Q1

REPORT INFORMATION
  Report Type: 
  Country: None (occurrence: None)
  Receive Date: 20070223
  Receipt Date: 20070215
  Transmission Date: 20070707
  Serious: Yes (Death, Life-Threatening, Hospitalization)
  Sender: FDA-Public Use
  Company Number: JP-BRISTOL-MYERS SQUIBB COMPANY-13675392

PATIENT
  Age: 49 Year
  Sex: Male
  Weight: 79 kg

DRUGS (2)
  1. DASATINIB [Suspect]
     Indication: LEUKAEMIA
     Route: 048
     Dates: start: 20070115, end: 20070209
  2. LOXONIN [Concomitant]
     Indication: PYREXIA
     Route: 048
     Dates: start: 20061225, end: 20061226

REACTIONS (6)
  - C-REACTIVE PROTEIN INCREASED [None]
  - COAGULOPATHY [None]
  - HAEMOPTYSIS [None]
  - PLEURAL EFFUSION [None]
  - PNEUMONIA [None]
  - PYREXIA [None]
